FAERS Safety Report 5504683-4 (Version None)
Quarter: 2007Q4

REPORT INFORMATION
  Report Type: 
  Country: None (occurrence: None)
  Receive Date: 20071031
  Receipt Date: 20071017
  Transmission Date: 20080405
  Serious: Yes (Other)
  Sender: FDA-Public Use
  Company Number: 2007JP004832

PATIENT
  Age: 27 Year
  Sex: Female

DRUGS (2)
  1. PROGRAF [Suspect]
     Indication: BONE MARROW TRANSPLANT
  2. PREDNISOLONE [Concomitant]

REACTIONS (4)
  - BLOOD BETA-D-GLUCAN INCREASED [None]
  - BRONCHIAL HAEMORRHAGE [None]
  - BRONCHOPULMONARY ASPERGILLOSIS [None]
  - HAEMOPTYSIS [None]
